FAERS Safety Report 9560568 (Version 8)
Quarter: 2014Q3

REPORT INFORMATION
  Report Type: Spontaneous
  Country: GB (occurrence: None)
  Receive Date: 20130925
  Receipt Date: 20140818
  Transmission Date: 20150326
  Serious: Yes (Congenital Anomaly, Other)
  Sender: FDA-Public Use
  Company Number: AUR-APL-2013-07872

PATIENT
  Sex: Female
  Weight: 2.2 kg

DRUGS (15)
  1. APTIVUS [Suspect]
     Active Substance: TIPRANAVIR
     Indication: HIV INFECTION
     Dosage: 500 MG, TWO TIMES A DAY, TRANSPLACENTAL ?
     Route: 064
     Dates: start: 20060905, end: 20081023
  2. ISENTRESS [Suspect]
     Active Substance: RALTEGRAVIR POTASSIUM
     Indication: HIV INFECTION
     Dosage: 800 MG, ONCE A DAY, TRANSPLACENTAL ?
     Route: 064
  3. PREZISTA [Suspect]
     Active Substance: DARUNAVIR ETHANOLATE
     Indication: HIV INFECTION
     Dosage: 600 MG, TWO TIMES A DAY, TRANSPLACENTAL ?
     Route: 064
     Dates: start: 20081023
  4. NORVIR [Suspect]
     Active Substance: RITONAVIR
     Indication: HIV INFECTION
     Dosage: 400 MG, ONCE A DAY, TRANSPLACENTAL?
     Route: 064
  5. TRUVADA [Suspect]
     Active Substance: EMTRICITABINE\TENOFOVIR DISOPROXIL FUMARATE
     Indication: HIV INFECTION
     Dosage: 1000 MG (500 MG,2 IN 1 D)
     Route: 064
     Dates: start: 20070605, end: 20081023
  6. INSULIN (INSULIN) [Concomitant]
     Active Substance: INSULIN NOS
  7. PREDNISOLONE (PREDNISOLONE) [Concomitant]
     Active Substance: PREDNISOLONE
  8. NOVORAPID [Concomitant]
     Active Substance: INSULIN ASPART
  9. ZIDOVUDINE. [Suspect]
     Active Substance: ZIDOVUDINE
     Indication: ANTIVIRAL PROPHYLAXIS
     Dosage: 1200 MG (600 MG,2 IN 1D)
     Route: 064
     Dates: start: 20070605, end: 20081023
  10. INTELENCE [Suspect]
     Active Substance: ETRAVIRINE
     Indication: HIV INFECTION
     Dosage: 1000 MG, ONCE A DAY, TRANSPLACENTAL ?
     Route: 064
     Dates: start: 20081023
  11. ISENTRESS [Suspect]
     Active Substance: RALTEGRAVIR POTASSIUM
     Dosage: 800 MG, ONCE A DAY, TRANSPLACENTAL ?
     Route: 064
  12. TRUVADA [Suspect]
     Active Substance: EMTRICITABINE\TENOFOVIR DISOPROXIL FUMARATE
     Dosage: 1000 MG (500 MG,2 IN 1 D)
     Route: 064
     Dates: start: 20070605, end: 20081023
  13. PREZISTA [Suspect]
     Active Substance: DARUNAVIR ETHANOLATE
     Dosage: 600 MG, TWO TIMES A DAY, TRANSPLACENTAL ?
     Route: 064
     Dates: start: 20081023
  14. INTELENCE [Suspect]
     Active Substance: ETRAVIRINE
     Dosage: 1000 MG, ONCE A DAY, TRANSPLACENTAL ?
     Route: 064
     Dates: start: 20081023
  15. NORVIR [Suspect]
     Active Substance: RITONAVIR
     Dosage: 400 MG, ONCE A DAY, TRANSPLACENTAL?
     Route: 064

REACTIONS (27)
  - Genitalia external ambiguous [None]
  - Gastrointestinal malformation [None]
  - Bladder agenesis [None]
  - Musculoskeletal disorder [None]
  - Exomphalos [None]
  - Premature baby [None]
  - Blood iron decreased [None]
  - Tethered cord syndrome [None]
  - Lipodystrophy acquired [None]
  - Anal atresia [None]
  - Maternal drugs affecting foetus [None]
  - Spine malformation [None]
  - Erythema [None]
  - Umbilical cord abnormality [None]
  - Meningomyelocele [None]
  - Sepsis [None]
  - Aspartate aminotransferase increased [None]
  - Congenital anomaly [None]
  - Neural tube defect [None]
  - Meconium stain [None]
  - Cloacal exstrophy [None]
  - Gastrointestinal disorder congenital [None]
  - Caudal regression syndrome [None]
  - Congenital genital malformation [None]
  - Spina bifida [None]
  - Anencephaly [None]
  - Foetal exposure during pregnancy [None]
